FAERS Safety Report 4881524-X (Version None)
Quarter: 2006Q1

REPORT INFORMATION
  Report Type: 
  Country: None (occurrence: None)
  Receive Date: 20060116
  Receipt Date: 20051122
  Transmission Date: 20060701
  Serious: Yes (Hospitalization)
  Sender: FDA-Public Use
  Company Number: FR-GLAXOSMITHKLINE-B0401431A

PATIENT
  Age: 4 Year
  Sex: Female
  Weight: 15.8 kg

DRUGS (14)
  1. DEROXAT [Suspect]
     Dosage: 3.5ML PER DAY
     Route: 048
     Dates: start: 20050831, end: 20051015
  2. KIDROLASE [Suspect]
     Dosage: 4000IU CYCLIC
     Route: 042
     Dates: start: 20050909, end: 20050928
  3. VINCRISTINE [Suspect]
     Dosage: 1MG PER DAY
     Route: 042
     Dates: start: 20050907, end: 20050928
  4. CERUBIDINE [Suspect]
     Dosage: 26MG PER DAY
     Route: 042
     Dates: start: 20050921, end: 20050928
  5. METHOTREXATE [Suspect]
     Dosage: 12MG PER DAY
     Route: 037
     Dates: start: 20050831, end: 20051007
  6. METHOTREXATE [Suspect]
     Dosage: 15MG PER DAY
     Route: 048
     Dates: start: 20051013
  7. PURINETHOL [Concomitant]
     Route: 048
  8. SOLUDECADRON [Concomitant]
     Route: 065
     Dates: start: 20050907, end: 20051003
  9. CODENFAN [Concomitant]
     Dosage: 15ML FOUR TIMES PER DAY
     Route: 048
  10. BICARBONATE [Concomitant]
     Route: 065
  11. FUNGIZONE [Concomitant]
     Route: 065
  12. ELUDRIL [Concomitant]
     Route: 065
  13. BACTRIM [Concomitant]
     Route: 065
  14. DUPHALAC [Concomitant]
     Route: 065

REACTIONS (8)
  - AREFLEXIA [None]
  - COMA [None]
  - CONSTIPATION [None]
  - CONVULSION [None]
  - LEUKOENCEPHALOPATHY [None]
  - LOSS OF CONSCIOUSNESS [None]
  - MALAISE [None]
  - VISUAL ACUITY REDUCED [None]
